FAERS Safety Report 8123472-8 (Version None)
Quarter: 2012Q1

REPORT INFORMATION
  Report Type: 
  Country: None (occurrence: None)
  Receive Date: 20120208
  Receipt Date: 20120129
  Transmission Date: 20120608
  Serious: Yes (Hospitalization)
  Sender: FDA-Public Use
  Company Number: PHHY2012ES007702

PATIENT
  Age: 28 Year
  Sex: Male

DRUGS (7)
  1. ECULIZUMAB [Concomitant]
     Dosage: 900 MG WEEKLY FOR 4 WEEKS
  2. PREDNISONE [Concomitant]
  3. SIROLIMUS [Concomitant]
  4. THYMOGLOBULIN [Concomitant]
  5. ECULIZUMAB [Concomitant]
     Dosage: 1200 MG/2 WEEKS
     Route: 042
  6. VACCINES [Concomitant]
  7. MYCOPHENOLIC ACID [Suspect]
     Indication: RENAL TRANSPLANT

REACTIONS (8)
  - RENAL TUBULAR NECROSIS [None]
  - THROMBOSIS [None]
  - THROMBOTIC MICROANGIOPATHY [None]
  - RENAL DISORDER [None]
  - CHRONIC ALLOGRAFT NEPHROPATHY [None]
  - COMPLICATIONS OF TRANSPLANTED KIDNEY [None]
  - AZOTAEMIA [None]
  - HAEMOLYTIC URAEMIC SYNDROME [None]
